FAERS Safety Report 10142126 (Version 1)
Quarter: 2014Q2

REPORT INFORMATION
  Report Type: Spontaneous
  Country: US (occurrence: US)
  Receive Date: 20140429
  Receipt Date: 20140429
  Transmission Date: 20141212
  Serious: Yes (Other)
  Sender: FDA-Public Use
  Company Number: US-SPECTRUM PHARMACEUTICALS, INC.-13-Z-US-00151

PATIENT
  Sex: Male
  Weight: 59.86 kg

DRUGS (3)
  1. ZEVALIN [Suspect]
     Indication: NON-HODGKIN^S LYMPHOMA
     Dosage: UNK, SINGLE
     Route: 042
     Dates: start: 20130312, end: 20130312
  2. ZEVALIN [Suspect]
     Dosage: UNK, SINGLE
     Route: 042
     Dates: start: 20130305, end: 20130305
  3. RITUXIMAB [Suspect]
     Indication: NON-HODGKIN^S LYMPHOMA
     Dosage: UNK, SINGLE
     Route: 065
     Dates: start: 20130305, end: 20130305

REACTIONS (2)
  - Platelet count decreased [Not Recovered/Not Resolved]
  - White blood cell count decreased [Not Recovered/Not Resolved]
